FAERS Safety Report 7570809-4 (Version None)
Quarter: 2011Q2

REPORT INFORMATION
  Report Type: 
  Country: None (occurrence: None)
  Receive Date: 20110624
  Receipt Date: 20110526
  Transmission Date: 20111010
  Serious: No
  Sender: FDA-Public Use
  Company Number: US-ALLERGAN-1107247US

PATIENT
  Age: 56 Year
  Sex: Female

DRUGS (3)
  1. LATISSE [Suspect]
     Indication: GROWTH OF EYELASHES
     Dosage: 1 GTT, QHS
  2. LATISSE [Suspect]
     Dosage: 1 GTT, QHS
  3. LATISSE [Suspect]
     Dosage: UNK
     Dates: end: 20100101

REACTIONS (1)
  - DRUG INEFFECTIVE [None]
